FAERS Safety Report 21036960 (Version 2)
Quarter: 2022Q3

REPORT INFORMATION
  Report Type: Report from Study
  Country: FR (occurrence: None)
  Receive Date: 20220702
  Receipt Date: 20220707
  Transmission Date: 20221026
  Serious: Yes (Hospitalization)
  Sender: FDA-Public Use
  Company Number: FR-ROCHE-3124669

PATIENT
  Age: 59 Year
  Sex: Male

DRUGS (28)
  1. OCRELIZUMAB [Suspect]
     Active Substance: OCRELIZUMAB
     Indication: Progressive multiple sclerosis
     Dosage: BASELINE WEEK 0
     Route: 042
     Dates: start: 20190327
  2. OCRELIZUMAB [Suspect]
     Active Substance: OCRELIZUMAB
     Dosage: VISIT 3 WEEK 2
     Route: 042
  3. OCRELIZUMAB [Suspect]
     Active Substance: OCRELIZUMAB
     Dosage: VISIT 4 WEEK 24
     Route: 042
  4. OCRELIZUMAB [Suspect]
     Active Substance: OCRELIZUMAB
     Dosage: VISIT 5 WEEK 48
     Route: 042
  5. OCRELIZUMAB [Suspect]
     Active Substance: OCRELIZUMAB
     Dosage: VISIT 6 WEEK 72
     Route: 042
  6. OCRELIZUMAB [Suspect]
     Active Substance: OCRELIZUMAB
     Dosage: VISIT 7 WEEK 96
     Route: 042
  7. OCRELIZUMAB [Suspect]
     Active Substance: OCRELIZUMAB
     Dosage: VISIT 8 WEEK 120
     Route: 042
  8. OCRELIZUMAB [Suspect]
     Active Substance: OCRELIZUMAB
     Dosage: VISIT 9 WEEK 144
     Route: 042
  9. TEGRETOL [Concomitant]
     Active Substance: CARBAMAZEPINE
     Route: 048
     Dates: start: 20180415
  10. AMITRIPTYLINE HYDROCHLORIDE [Concomitant]
     Active Substance: AMITRIPTYLINE HYDROCHLORIDE
     Dates: start: 20190115, end: 20190327
  11. CYMBALTA [Concomitant]
     Active Substance: DULOXETINE HYDROCHLORIDE
     Route: 048
     Dates: start: 20190327, end: 20190404
  12. CYMBALTA [Concomitant]
     Active Substance: DULOXETINE HYDROCHLORIDE
     Route: 048
     Dates: start: 20190404
  13. DALFAMPRIDINE [Concomitant]
     Active Substance: DALFAMPRIDINE
     Route: 048
     Dates: start: 20190121, end: 20190226
  14. EUPANTOL [Concomitant]
     Active Substance: PANTOPRAZOLE SODIUM
     Route: 048
     Dates: start: 20190326, end: 20201001
  15. EUPANTOL [Concomitant]
     Active Substance: PANTOPRAZOLE SODIUM
     Dates: start: 20210326
  16. PREVENAR [Concomitant]
     Active Substance: PNEUMOCOCCAL 7-VALENT CONJUGATE VACCINE (DIPHTHERIA CRM197 PROTEIN)
     Route: 030
     Dates: start: 201904, end: 201909
  17. PNEUMOVAX VACCIN [Concomitant]
     Route: 030
     Dates: start: 201904
  18. CIALIS [Concomitant]
     Active Substance: TADALAFIL
     Route: 048
     Dates: start: 20190924
  19. TROSPIUM CHLORIDE [Concomitant]
     Active Substance: TROSPIUM CHLORIDE
     Route: 048
     Dates: start: 20210326
  20. PFIZER-BIONTECH COVID-19 VACCINE [Concomitant]
     Active Substance: TOZINAMERAN
     Dosage: NEXT DOSE ON 10/JUN/2021, 10/DEC/2021
     Route: 030
     Dates: start: 20210429
  21. METHYLPREDNISOLONE [Concomitant]
     Active Substance: METHYLPREDNISOLONE
     Dosage: NEXT DOSE- WEEK -2 09/APR/2019, WEEK 24- 24/SEP/2019, WEEK 48- 06/APR/2020, WEEK 72-01/OCT/2022, WEE
     Route: 042
     Dates: start: 20190327, end: 20190327
  22. LEVOCETIRIZINE DIHYDROCHLORIDE [Concomitant]
     Active Substance: LEVOCETIRIZINE DIHYDROCHLORIDE
     Dosage: NEXT DOSE- WEEK 2 09/APR/2019, WEEK 24- 24/SEP/2019, WEEK 48- 06/APR/2020, WEEK 72-01/OCT/2022
     Route: 048
     Dates: start: 20190327, end: 20190327
  23. LEVOCETIRIZINE DIHYDROCHLORIDE [Concomitant]
     Active Substance: LEVOCETIRIZINE DIHYDROCHLORIDE
     Dosage: WEEK 96, NEXT DOSE-  WEEK 120-07/SEP/2021, WEEK 144-11/FEB/2022
     Route: 048
     Dates: start: 20210326
  24. DOLIPRANE [Concomitant]
     Active Substance: ACETAMINOPHEN
     Dosage: NEXT DOSE- WEEK 2 09/APR/2019, WEEK 24- 24/SEP/2019, WEEK 48- 06/APR/2020, WEEK 72-01/OCT/2022, WEEK
     Route: 048
     Dates: start: 20190327, end: 20190327
  25. AMOXICILLIN [Concomitant]
     Active Substance: AMOXICILLIN
     Indication: Pneumonitis
     Route: 048
     Dates: start: 20191226, end: 20200103
  26. AMOXICILLIN [Concomitant]
     Active Substance: AMOXICILLIN
     Route: 048
     Dates: start: 20200320, end: 20200328
  27. CLAVULANIC ACID [Concomitant]
     Active Substance: CLAVULANIC ACID
     Indication: Pneumonitis
     Route: 048
     Dates: start: 20191226, end: 20200103
  28. CLAVULANIC ACID [Concomitant]
     Active Substance: CLAVULANIC ACID
     Route: 048
     Dates: start: 20200320, end: 20200328

REACTIONS (1)
  - Prostatitis [Recovered/Resolved]

NARRATIVE: CASE EVENT DATE: 20220502
